FAERS Safety Report 7319220-1 (Version None)
Quarter: 2011Q1

REPORT INFORMATION
  Report Type: 
  Country: None (occurrence: None)
  Receive Date: 20110228
  Receipt Date: 20110215
  Transmission Date: 20110831
  Serious: Yes (Other)
  Sender: FDA-Public Use
  Company Number: PHHY2010FI69617

PATIENT
  Sex: Female

DRUGS (8)
  1. SANDOSTATIN LAR [Suspect]
     Dosage: 30 MG, QMO
     Route: 030
  2. SANDOSTATIN LAR [Suspect]
     Dosage: 30 MG, QMO
     Route: 030
     Dates: start: 20100401
  3. INTRON A [Concomitant]
     Dosage: 5000000 U, QW3
     Dates: end: 20090201
  4. SANDOSTATIN LAR [Suspect]
     Dosage: 30 MG, ONCE IN TWO WEEK
     Route: 030
  5. SANDOSTATIN LAR [Suspect]
     Indication: METASTASES TO LYMPH NODES
     Dosage: 20 MG, QMO
     Route: 030
     Dates: start: 20050201, end: 20050601
  6. SANDOSTATIN LAR [Suspect]
     Dosage: 20 MG, QMO
     Route: 030
     Dates: start: 20060601, end: 20070501
  7. SANDOSTATIN LAR [Suspect]
     Dosage: 20 MG, QMO
     Route: 030
     Dates: start: 20080201
  8. AFINITOR [Concomitant]
     Indication: NEOPLASM MALIGNANT
     Dates: start: 20100401

REACTIONS (9)
  - NEOPLASM MALIGNANT [None]
  - ABDOMINAL PAIN [None]
  - ARTHRALGIA [None]
  - BLOOD CHROMOGRANIN A INCREASED [None]
  - 5-HYDROXYINDOLACETIC ACID IN URINE INCREASED [None]
  - CARCINOID SYNDROME [None]
  - RHEUMATOID ARTHRITIS [None]
  - METASTASES TO LIVER [None]
  - METASTASES TO LYMPH NODES [None]
